FAERS Safety Report 14501837 (Version 1)
Quarter: 2018Q1

REPORT INFORMATION
  Report Type: Spontaneous
  Country: US (occurrence: US)
  Receive Date: 20180207
  Receipt Date: 20180207
  Transmission Date: 20180509
  Serious: No
  Sender: FDA-Public Use
  Company Number: US-CELGENEUS-USA-20180111019

PATIENT
  Age: 68 Year
  Sex: Male
  Weight: 154 kg

DRUGS (8)
  1. REVLIMID [Suspect]
     Active Substance: LENALIDOMIDE
     Indication: OFF LABEL USE
     Dosage: 15 MILLIGRAM
     Route: 048
     Dates: start: 201709
  2. REVLIMID [Suspect]
     Active Substance: LENALIDOMIDE
     Dosage: 5 MILLIGRAM
     Route: 048
     Dates: start: 201711
  3. ISTODAX [Suspect]
     Active Substance: ROMIDEPSIN
     Route: 041
     Dates: start: 20180126
  4. REVLIMID [Suspect]
     Active Substance: LENALIDOMIDE
     Indication: MYCOSIS FUNGOIDES
     Dosage: 15 MILLIGRAM
     Route: 048
     Dates: start: 201708
  5. REVLIMID [Suspect]
     Active Substance: LENALIDOMIDE
     Route: 048
     Dates: start: 2017
  6. REVLIMID [Suspect]
     Active Substance: LENALIDOMIDE
     Dosage: 25 MILLIGRAM
     Route: 048
     Dates: start: 201712
  7. KEYTRUDA [Concomitant]
     Active Substance: PEMBROLIZUMAB
     Indication: PRODUCT USED FOR UNKNOWN INDICATION
     Route: 065
     Dates: start: 2017
  8. ISTODAX [Suspect]
     Active Substance: ROMIDEPSIN
     Indication: MYCOSIS FUNGOIDES
     Route: 041
     Dates: start: 20180119

REACTIONS (15)
  - Vomiting [Not Recovered/Not Resolved]
  - Pyrexia [Recovered/Resolved]
  - Fatigue [Not Recovered/Not Resolved]
  - Drug effect decreased [Unknown]
  - Decreased appetite [Not Recovered/Not Resolved]
  - Urticaria [Not Recovered/Not Resolved]
  - Arthralgia [Not Recovered/Not Resolved]
  - Musculoskeletal discomfort [Not Recovered/Not Resolved]
  - Balance disorder [Not Recovered/Not Resolved]
  - Chills [Recovered/Resolved]
  - Nausea [Not Recovered/Not Resolved]
  - Mouth ulceration [Not Recovered/Not Resolved]
  - Headache [Not Recovered/Not Resolved]
  - Pruritus [Not Recovered/Not Resolved]
  - Chills [Recovered/Resolved]

NARRATIVE: CASE EVENT DATE: 2017
